FAERS Safety Report 5430091-0 (Version None)
Quarter: 2007Q3

REPORT INFORMATION
  Report Type: 
  Country: None (occurrence: None)
  Receive Date: 20070829
  Receipt Date: 20070819
  Transmission Date: 20080115
  Serious: Yes (Hospitalization)
  Sender: FDA-Public Use
  Company Number: DE-ABBOTT-07P-062-0378343-00

PATIENT
  Age: 21 Year
  Sex: Female
  Weight: 52 kg

DRUGS (14)
  1. AKINETON [Suspect]
     Indication: DRUG USE FOR UNKNOWN INDICATION
     Route: 048
     Dates: start: 20070819, end: 20070819
  2. AKINETON [Suspect]
  3. ERGENYL TABLETS [Suspect]
     Indication: DRUG USE FOR UNKNOWN INDICATION
     Route: 048
     Dates: start: 20070819, end: 20070819
  4. ERGENYL TABLETS [Suspect]
     Route: 048
     Dates: start: 20070819, end: 20070819
  5. ERGENYL TABLETS [Suspect]
  6. ERGENYL TABLETS [Suspect]
  7. EUNERPAN [Suspect]
     Indication: DRUG USE FOR UNKNOWN INDICATION
     Route: 048
     Dates: start: 20070819, end: 20070819
  8. EUNERPAN [Suspect]
  9. QUETIAPINE FUMARATE [Suspect]
     Indication: DRUG USE FOR UNKNOWN INDICATION
     Route: 048
     Dates: start: 20070819, end: 20070819
  10. QUETIAPINE FUMARATE [Suspect]
  11. TRANCOLONG [Suspect]
     Indication: DRUG USE FOR UNKNOWN INDICATION
     Route: 048
     Dates: start: 20070819, end: 20070819
  12. TRANCOLONG [Suspect]
  13. CHLORPROTHIXENE [Suspect]
     Indication: DRUG USE FOR UNKNOWN INDICATION
     Route: 048
     Dates: start: 20070819, end: 20070819
  14. CHLORPROTHIXENE [Suspect]

REACTIONS (5)
  - HYPOTENSION [None]
  - OVERDOSE [None]
  - SOMNOLENCE [None]
  - SUICIDE ATTEMPT [None]
  - TACHYCARDIA [None]
